FAERS Safety Report 5244209-6 (Version None)
Quarter: 2007Q1

REPORT INFORMATION
  Report Type: 
  Country: None (occurrence: None)
  Receive Date: 20070222
  Receipt Date: 20070215
  Transmission Date: 20070707
  Serious: Yes (Hospitalization, Other)
  Sender: FDA-Public Use
  Company Number: GB-GLAXOSMITHKLINE-B0459323A

PATIENT
  Age: 43 Year
  Sex: Female

DRUGS (14)
  1. ACYCLOVIR [Suspect]
     Dosage: 750MG PER DAY
     Route: 042
     Dates: start: 20061231, end: 20061231
  2. ACYCLOVIR [Suspect]
     Dosage: 200MG THREE TIMES PER DAY
     Route: 048
     Dates: start: 20070102, end: 20070113
  3. CIPROFLOXACIN [Suspect]
     Dosage: 500MG TWICE PER DAY
     Route: 048
     Dates: start: 20061229, end: 20061231
  4. CIPROFLOXACIN [Suspect]
     Dosage: 750MG TWICE PER DAY
     Route: 048
     Dates: start: 20070111, end: 20070112
  5. ADIZEM-XL [Concomitant]
     Dosage: 240MG PER DAY
     Route: 048
  6. ALLOPURINOL SODIUM [Concomitant]
     Route: 048
     Dates: start: 20061230
  7. ALL-TRANS-RETINOIC ACID [Concomitant]
     Dosage: 80MG PER DAY
     Route: 048
     Dates: start: 20061220
  8. CANDESARTAN [Concomitant]
     Dosage: 8MG PER DAY
     Route: 048
  9. CASPOFUNGIN [Concomitant]
     Dosage: 50MG PER DAY
     Route: 042
     Dates: start: 20070104, end: 20070110
  10. CEFTAZIDIME [Concomitant]
     Dosage: 2G THREE TIMES PER DAY
     Route: 042
     Dates: start: 20070105, end: 20070109
  11. CLOMIPRAMINE HCL [Concomitant]
     Dosage: 20MG TWICE PER DAY
     Route: 048
  12. METRONIDAZOLE [Concomitant]
     Dosage: 500MG THREE TIMES PER DAY
     Route: 042
     Dates: start: 20070102, end: 20070109
  13. TEICOPLANIN [Concomitant]
     Dosage: 400MG PER DAY
     Route: 042
     Dates: start: 20070106, end: 20070110
  14. METRONIDAZOLE [Concomitant]
     Dosage: 5MG THREE TIMES PER DAY
     Route: 048

REACTIONS (5)
  - HYPOPERFUSION [None]
  - ILL-DEFINED DISORDER [None]
  - NEPHRITIS INTERSTITIAL [None]
  - RENAL FAILURE ACUTE [None]
  - SEPSIS [None]
